FAERS Safety Report 20936760 (Version 1)
Quarter: 2022Q2

REPORT INFORMATION
  Report Type: Spontaneous
  Country: IT (occurrence: IT)
  Receive Date: 20220609
  Receipt Date: 20220609
  Transmission Date: 20220721
  Serious: Yes (Other)
  Sender: FDA-Public Use
  Company Number: IT-TEVA-2022-IT-2043366

PATIENT
  Age: 68 Year
  Sex: Female

DRUGS (2)
  1. RASAGILINE [Suspect]
     Active Substance: RASAGILINE
     Indication: Parkinson^s disease
     Dosage: 1 MILLIGRAM DAILY;
     Route: 065
  2. ROTIGOTINE [Concomitant]
     Active Substance: ROTIGOTINE
     Indication: Parkinson^s disease
     Dosage: 4 MILLIGRAM DAILY;
     Route: 062

REACTIONS (1)
  - Drug withdrawal syndrome [Recovering/Resolving]
